FAERS Safety Report 24074046 (Version 2)
Quarter: 2025Q2

REPORT INFORMATION
  Report Type: Spontaneous
  Country: US (occurrence: US)
  Receive Date: 20240710
  Receipt Date: 20250605
  Transmission Date: 20250717
  Serious: No
  Sender: PIERRE FABRE MEDICAMENT
  Company Number: US-PFM-2024-02519

PATIENT
  Sex: Female
  Weight: 8.06 kg

DRUGS (2)
  1. HEMANGEOL [Suspect]
     Active Substance: PROPRANOLOL HYDROCHLORIDE
     Indication: Haemangioma
     Dosage: 1.6 ML, BID (2/DAY)
     Dates: start: 20240325
  2. HEMANGEOL [Suspect]
     Active Substance: PROPRANOLOL HYDROCHLORIDE
     Route: 065

REACTIONS (4)
  - Nasal congestion [Unknown]
  - Haemangioma [Recovering/Resolving]
  - Condition aggravated [Recovering/Resolving]
  - Respiratory syncytial virus infection [Unknown]
